FAERS Safety Report 7600701-8 (Version None)
Quarter: 2011Q3

REPORT INFORMATION
  Report Type: 
  Country: None (occurrence: None)
  Receive Date: 20110711
  Receipt Date: 20110705
  Transmission Date: 20111222
  Serious: Yes (Other)
  Sender: FDA-Public Use
  Company Number: DE-ROCHE-788185

PATIENT
  Sex: Female

DRUGS (1)
  1. BONIVA [Suspect]
     Indication: OSTEOPOROSIS
     Route: 042
     Dates: start: 20061129, end: 20090916

REACTIONS (5)
  - JAW DISORDER [None]
  - TOOTH EXTRACTION [None]
  - BONE PAIN [None]
  - IMPAIRED HEALING [None]
  - MUSCLE SPASMS [None]
